FAERS Safety Report 4526372-5 (Version None)
Quarter: 2004Q4

REPORT INFORMATION
  Report Type: 
  Country: None (occurrence: None)
  Receive Date: 20041214
  Receipt Date: 20041202
  Transmission Date: 20050328
  Serious: Yes (Hospitalization)
  Sender: FDA-Public Use
  Company Number: GB-GLAXOSMITHKLINE-B0359117A

PATIENT
  Sex: Male

DRUGS (4)
  1. PARACETAMOL [Suspect]
     Dates: start: 20041030, end: 20041030
  2. EFFEXOR [Suspect]
  3. OLANZAPINE [Suspect]
     Dates: start: 20041030, end: 20041030
  4. ALCOHOL [Concomitant]

REACTIONS (2)
  - INTENTIONAL OVERDOSE [None]
  - SUICIDE ATTEMPT [None]
